FAERS Safety Report 24554501 (Version 1)
Quarter: 2024Q4

REPORT INFORMATION
  Report Type: Spontaneous
  Country: ES (occurrence: ES)
  Receive Date: 20241028
  Receipt Date: 20241028
  Transmission Date: 20250114
  Serious: Yes (Hospitalization)
  Sender: ABBVIE
  Company Number: ES-ABBVIE-5945586

PATIENT
  Sex: Male
  Weight: 97 kg

DRUGS (2)
  1. SKYRIZI [Suspect]
     Active Substance: RISANKIZUMAB-RZAA
     Indication: Psoriasis
     Route: 058
     Dates: start: 202211, end: 20240911
  2. SKYRIZI [Suspect]
     Active Substance: RISANKIZUMAB-RZAA
     Route: 058

REACTIONS (10)
  - Tuberculosis [Recovering/Resolving]
  - Paraesthesia [Not Recovered/Not Resolved]
  - Cellulitis [Unknown]
  - Chills [Unknown]
  - Dermatitis [Unknown]
  - Pneumonia [Unknown]
  - Erythema [Not Recovered/Not Resolved]
  - Dyspnoea [Unknown]
  - Odynophagia [Unknown]
  - Arthralgia [Not Recovered/Not Resolved]

NARRATIVE: CASE EVENT DATE: 20240101
